FAERS Safety Report 8359083-9 (Version None)
Quarter: 2012Q2

REPORT INFORMATION
  Report Type: 
  Country: None (occurrence: None)
  Receive Date: 20120515
  Receipt Date: 20091214
  Transmission Date: 20120825
  Serious: No
  Sender: FDA-Public Use
  Company Number: 2009BI041127

PATIENT
  Age: 51 Year
  Sex: Female

DRUGS (1)
  1. TYSABRI [Suspect]
     Indication: MULTIPLE SCLEROSIS
     Route: 042
     Dates: start: 20091112

REACTIONS (10)
  - EYE IRRITATION [None]
  - MEMORY IMPAIRMENT [None]
  - LACRIMATION INCREASED [None]
  - HEADACHE [None]
  - BALANCE DISORDER [None]
  - INFLUENZA [None]
  - NAUSEA [None]
  - VOMITING [None]
  - MUSCLE SPASTICITY [None]
  - FATIGUE [None]
